FAERS Safety Report 5451373-2 (Version None)
Quarter: 2007Q3

REPORT INFORMATION
  Report Type: 
  Country: None (occurrence: None)
  Receive Date: 20070913
  Receipt Date: 20070911
  Transmission Date: 20080115
  Serious: Yes (Death)
  Sender: FDA-Public Use
  Company Number: DE-MERCK-0709USA00686

PATIENT
  Age: 47 Year
  Sex: Female

DRUGS (1)
  1. DECADRON [Suspect]
     Indication: PROPHYLAXIS
     Route: 048

REACTIONS (1)
  - ENCEPHALITIS HERPES [None]
